FAERS Safety Report 17174766 (Version 1)
Quarter: 2019Q4

REPORT INFORMATION
  Report Type: Spontaneous
  Country: SE (occurrence: SE)
  Receive Date: 20191219
  Receipt Date: 20191219
  Transmission Date: 20200122
  Serious: Yes (Other)
  Sender: FDA-Public Use
  Company Number: SE-MYLANLABS-2019M1124824

PATIENT
  Age: 60 Year
  Sex: Female

DRUGS (1)
  1. ESOMEPRAZOLE. [Suspect]
     Active Substance: ESOMEPRAZOLE MAGNESIUM
     Indication: CHEMOTHERAPY TOXICITY ATTENUATION
     Dosage: 20 MILLIGRAM
     Route: 048
     Dates: start: 20190807, end: 20190813

REACTIONS (4)
  - Rash [Unknown]
  - Abdominal pain upper [Unknown]
  - Lip swelling [Unknown]
  - Dysphagia [Unknown]

NARRATIVE: CASE EVENT DATE: 20190807
